FAERS Safety Report 6850499-6 (Version None)
Quarter: 2010Q3

REPORT INFORMATION
  Report Type: 
  Country: None (occurrence: None)
  Receive Date: 20100716
  Receipt Date: 20071013
  Transmission Date: 20110219
  Serious: No
  Sender: FDA-Public Use
  Company Number: US-PFIZER INC-2007087364

PATIENT
  Sex: Male
  Weight: 81.6 kg

DRUGS (2)
  1. CHANTIX [Suspect]
     Indication: SMOKING CESSATION THERAPY
     Dates: start: 20071001
  2. REQUIP [Concomitant]
     Indication: RESTLESS LEGS SYNDROME

REACTIONS (2)
  - OROPHARYNGEAL PAIN [None]
  - PHARYNGITIS [None]
